FAERS Safety Report 18979027 (Version 1)
Quarter: 2021Q1

REPORT INFORMATION
  Report Type: Spontaneous
  Country: CN (occurrence: CN)
  Receive Date: 20210308
  Receipt Date: 20210308
  Transmission Date: 20210420
  Serious: Yes (Hospitalization, Other)
  Sender: FDA-Public Use
  Company Number: CN-JIANGSU HENGRUI MEDICINE CO., LTD.-2107672

PATIENT
  Age: 92 Year
  Sex: Female

DRUGS (4)
  1. INSULIN INJECTION [Concomitant]
     Active Substance: INSULIN NOS
     Route: 041
     Dates: start: 20210211, end: 20210214
  2. AMINOCAPROIC ACID. [Concomitant]
     Active Substance: AMINOCAPROIC ACID
     Dates: start: 20210207, end: 20210214
  3. FONDAPARINUX SODIUM. [Suspect]
     Active Substance: FONDAPARINUX SODIUM
     Indication: ANTICOAGULANT THERAPY
     Dates: start: 20210207, end: 20210214
  4. KETOROLAC TROMETHAMINE. [Concomitant]
     Active Substance: KETOROLAC TROMETHAMINE
     Dates: start: 20210207, end: 20210214

REACTIONS (3)
  - Small intestinal haemorrhage [Recovered/Resolved]
  - Ileal ulcer [Recovered/Resolved]
  - Pneumonia [Recovering/Resolving]

NARRATIVE: CASE EVENT DATE: 20210214
